FAERS Safety Report 7105573-6 (Version None)
Quarter: 2010Q4

REPORT INFORMATION
  Report Type: 
  Country: None (occurrence: None)
  Receive Date: 20101116
  Receipt Date: 20101111
  Transmission Date: 20110411
  Serious: Yes (Other)
  Sender: FDA-Public Use
  Company Number: GB-ROCHE-740981

PATIENT
  Age: 37 Year
  Sex: Female

DRUGS (2)
  1. CLONAZEPAM [Suspect]
     Route: 065
  2. ABILIFY [Suspect]
     Route: 065

REACTIONS (2)
  - ACUTE MYOCARDIAL INFARCTION [None]
  - SEPSIS [None]
